FAERS Safety Report 24262244 (Version 1)
Quarter: 2024Q3

REPORT INFORMATION
  Report Type: Spontaneous
  Country: FR (occurrence: FR)
  Receive Date: 20240829
  Receipt Date: 20240829
  Transmission Date: 20241017
  Serious: Yes (Hospitalization)
  Sender: RANBAXY
  Company Number: FR-AFSSAPS-RN2024000653

PATIENT
  Age: 66 Year
  Sex: Female

DRUGS (5)
  1. AZITHROMYCIN [Suspect]
     Active Substance: AZITHROMYCIN
     Indication: Tonsillitis
     Dosage: 500 MG/J 3HOURS
     Route: 048
     Dates: start: 20240523, end: 20240525
  2. ACETAMINOPHEN [Suspect]
     Active Substance: ACETAMINOPHEN
     Indication: Tonsillitis
     Dosage: UNK
     Route: 048
     Dates: start: 20240523
  3. BICLOTYMOL [Suspect]
     Active Substance: BICLOTYMOL
     Indication: Tonsillitis
     Dosage: UNK
     Route: 048
     Dates: start: 20240523
  4. MELATONIN [Suspect]
     Active Substance: MELATONIN
     Indication: Product used for unknown indication
     Dosage: UNK
     Route: 048
     Dates: start: 20240523
  5. SACCHAROMYCES CEREVISIAE\SODIUM SULFATE [Suspect]
     Active Substance: SACCHAROMYCES CEREVISIAE\SODIUM SULFATE
     Indication: Tonsillitis
     Dosage: UNK
     Route: 048
     Dates: start: 20240523

REACTIONS (1)
  - Rash maculo-papular [Not Recovered/Not Resolved]

NARRATIVE: CASE EVENT DATE: 20240524
